FAERS Safety Report 10597809 (Version 4)
Quarter: 2015Q1

REPORT INFORMATION
  Report Type: Spontaneous
  Country: JP (occurrence: JP)
  Receive Date: 20141121
  Receipt Date: 20150109
  Transmission Date: 20150720
  Serious: Yes (Hospitalization)
  Sender: FDA-Public Use
  Company Number: JP-CELGENE-JPN-2014112252

PATIENT
  Age: 17 Year
  Sex: Male
  Weight: 21 kg

DRUGS (5)
  1. VIDAZA [Suspect]
     Active Substance: AZACITIDINE
     Route: 041
     Dates: start: 20141014, end: 20141018
  2. VIDAZA [Suspect]
     Active Substance: AZACITIDINE
     Route: 041
     Dates: start: 20140916, end: 20140920
  3. VIDAZA [Suspect]
     Active Substance: AZACITIDINE
     Route: 041
     Dates: start: 20140818, end: 20140822
  4. VIDAZA [Suspect]
     Active Substance: AZACITIDINE
     Route: 041
     Dates: start: 20141105
  5. VIDAZA [Suspect]
     Active Substance: AZACITIDINE
     Indication: CHRONIC MYELOMONOCYTIC LEUKAEMIA
     Route: 041
     Dates: start: 20140714, end: 20140718

REACTIONS (4)
  - Gastrointestinal hypomotility [Recovered/Resolved]
  - Gastrointestinal hypomotility [Recovered/Resolved]
  - Gastrointestinal hypomotility [Recovered/Resolved]
  - Gastrointestinal hypomotility [Recovered/Resolved]

NARRATIVE: CASE EVENT DATE: 20140801
